FAERS Safety Report 25751538 (Version 1)
Quarter: 2025Q3

REPORT INFORMATION
  Report Type: Report from Study
  Country: EU (occurrence: EU)
  Receive Date: 20250902
  Receipt Date: 20250902
  Transmission Date: 20251020
  Serious: Yes (Other)
  Sender: NOVARTIS
  Company Number: EU-002147023-NVSC2025BE135691

PATIENT
  Sex: Male

DRUGS (2)
  1. KESIMPTA [Suspect]
     Active Substance: OFATUMUMAB
     Indication: Relapsing multiple sclerosis
     Route: 058
     Dates: start: 20250812
  2. KESIMPTA [Suspect]
     Active Substance: OFATUMUMAB
     Route: 065
     Dates: start: 20250826

REACTIONS (5)
  - Pyrexia [Unknown]
  - Muscle spasms [Unknown]
  - Neuralgia [Unknown]
  - Muscle contractions involuntary [Unknown]
  - Pain [Unknown]

NARRATIVE: CASE EVENT DATE: 20250819
